FAERS Safety Report 23434235 (Version 1)
Quarter: 2024Q1

REPORT INFORMATION
  Report Type: Spontaneous
  Country: IN (occurrence: IN)
  Receive Date: 20240123
  Receipt Date: 20240123
  Transmission Date: 20240410
  Serious: Yes (Other)
  Sender: FDA-Public Use
  Company Number: IN-PFIZER INC-PV202300168344

PATIENT
  Age: 65 Year
  Sex: Male

DRUGS (2)
  1. LORLATINIB [Suspect]
     Active Substance: LORLATINIB
     Indication: Lung adenocarcinoma
     Dosage: 100 MG, 1X/DAY
     Route: 048
     Dates: start: 20230918
  2. DEPLATT CV [Concomitant]

REACTIONS (19)
  - Pleural effusion [Recovering/Resolving]
  - Weight decreased [Unknown]
  - Weight increased [Unknown]
  - Fatigue [Unknown]
  - Asthenia [Not Recovered/Not Resolved]
  - Pain [Unknown]
  - Mobility decreased [Unknown]
  - Hypokinesia [Unknown]
  - Depression [Unknown]
  - Tension [Unknown]
  - Anxiety [Unknown]
  - Cough [Recovering/Resolving]
  - Decreased appetite [Recovered/Resolved]
  - Dyspnoea exertional [Not Recovered/Not Resolved]
  - Insomnia [Not Recovered/Not Resolved]
  - Haemoglobin decreased [Not Recovered/Not Resolved]
  - Back pain [Unknown]
  - Oedema peripheral [Unknown]
  - Balance disorder [Unknown]
